FAERS Safety Report 10026278 (Version 1)
Quarter: 2014Q1

REPORT INFORMATION
  Report Type: Spontaneous
  Country: IE (occurrence: IE)
  Receive Date: 20140320
  Receipt Date: 20140320
  Transmission Date: 20141002
  Serious: Yes (Other)
  Sender: FDA-Public Use
  Company Number: IE-AMGEN-IRLSP2014018977

PATIENT
  Sex: Male

DRUGS (4)
  1. VECTIBIX [Suspect]
     Indication: COLORECTAL CANCER METASTATIC
     Dosage: UNK
     Route: 065
  2. FLUOROURACIL [Concomitant]
     Indication: COLORECTAL CANCER METASTATIC
     Dosage: UNK
  3. FOLINIC ACID [Concomitant]
     Indication: COLORECTAL CANCER METASTATIC
     Dosage: UNK
  4. OXALIPLATIN [Concomitant]
     Indication: COLORECTAL CANCER METASTATIC
     Dosage: UNK

REACTIONS (2)
  - Skin toxicity [Unknown]
  - Nail disorder [Unknown]
